FAERS Safety Report 4873267-3 (Version None)
Quarter: 2005Q4

REPORT INFORMATION
  Report Type: 
  Country: None (occurrence: None)
  Receive Date: 20051201
  Receipt Date: 20050829
  Transmission Date: 20060501
  Serious: No
  Sender: FDA-Public Use
  Company Number: 2005PV001299

PATIENT
  Age: 65 Year
  Sex: Female

DRUGS (9)
  1. BYETTA [Suspect]
     Indication: DIABETES MELLITUS NON-INSULIN-DEPENDENT
     Dosage: 5 MCG;BID;SC
     Route: 058
     Dates: start: 20050101
  2. ACTOS [Concomitant]
  3. CYMBALTA [Concomitant]
  4. AMBIEN [Concomitant]
  5. LIPITOR [Concomitant]
  6. MOBIC [Concomitant]
  7. PREVACID [Concomitant]
  8. CALCIUM/VITAMIN D NOS [Concomitant]
  9. CERESOLIN [Concomitant]

REACTIONS (1)
  - INJECTION SITE INFLAMMATION [None]
